FAERS Safety Report 24204907 (Version 1)
Quarter: 2024Q3

REPORT INFORMATION
  Report Type: Spontaneous
  Country: SE (occurrence: SE)
  Receive Date: 20240813
  Receipt Date: 20240813
  Transmission Date: 20241017
  Serious: Yes (Other)
  Sender: TEVA
  Company Number: SE-TEVA-VS-3228787

PATIENT
  Age: 87 Year
  Sex: Female

DRUGS (6)
  1. AMLODIPINE [Suspect]
     Active Substance: AMLODIPINE BESYLATE
     Indication: Hypertension
     Route: 065
     Dates: start: 20240722
  2. AMLODIPINE [Suspect]
     Active Substance: AMLODIPINE BESYLATE
     Indication: Hypertension
     Route: 065
  3. HIPREX [Concomitant]
     Active Substance: METHENAMINE HIPPURATE
     Indication: Prophylaxis urinary tract infection
     Dosage: HAVE HAD FOR A LONG TIME
  4. ASPIRIN [Concomitant]
     Active Substance: ASPIRIN
     Indication: Anticoagulant therapy
     Dosage: HAD FOR A LONG TIME
  5. Rennie [Concomitant]
     Indication: Gastrooesophageal reflux disease
     Dosage: IF NECESSARY,HAVE HAD ON AND OFF FOR A LONG TIME
  6. IRBESARTAN [Concomitant]
     Active Substance: IRBESARTAN
     Indication: Hypertension
     Dosage: HAVE HAD FOR A LONG TIME

REACTIONS (3)
  - Peripheral swelling [Not Recovered/Not Resolved]
  - Dyspepsia [Unknown]
  - Joint swelling [Unknown]

NARRATIVE: CASE EVENT DATE: 20240701
